FAERS Safety Report 9680962 (Version 1)
Quarter: 2013Q4

REPORT INFORMATION
  Report Type: Report from Study
  Country: US (occurrence: US)
  Receive Date: 20131111
  Receipt Date: 20131111
  Transmission Date: 20140711
  Serious: Yes (Other)
  Sender: FDA-Public Use
  Company Number: US-ALEXION PHARMACEUTICALS INC.-A200800463

PATIENT
  Sex: Male

DRUGS (1)
  1. SOLIRIS [Suspect]
     Indication: PAROXYSMAL NOCTURNAL HAEMOGLOBINURIA
     Dosage: UNK
     Route: 042

REACTIONS (7)
  - Haemoglobin decreased [Recovering/Resolving]
  - Dehydration [Unknown]
  - Blood glucose fluctuation [Unknown]
  - Blood creatinine increased [Unknown]
  - Blood bilirubin abnormal [Unknown]
  - Blood lactate dehydrogenase increased [Recovering/Resolving]
  - Tremor [Unknown]
